FAERS Safety Report 4656806-7 (Version None)
Quarter: 2005Q2

REPORT INFORMATION
  Report Type: 
  Country: None (occurrence: None)
  Receive Date: 20050506
  Receipt Date: 20050302
  Transmission Date: 20051028
  Serious: Yes (Hospitalization)
  Sender: FDA-Public Use
  Company Number: 2005UW03181

PATIENT
  Age: 69 Year
  Sex: Male
  Weight: 86 kg

DRUGS (7)
  1. IRESSA [Suspect]
     Indication: METASTATIC MALIGNANT MELANOMA
     Dosage: 250 MG DAILY PO
     Route: 048
     Dates: start: 20041118, end: 20050225
  2. IRESSA [Suspect]
     Indication: METASTATIC MALIGNANT MELANOMA
     Dosage: 250 MG DAILY PO
     Route: 048
     Dates: start: 20050301, end: 20050317
  3. TOPROL-XL [Concomitant]
  4. LIPITOR [Concomitant]
  5. COUMADIN [Concomitant]
  6. ALLOPURINOL [Concomitant]
  7. VERELAN [Concomitant]

REACTIONS (20)
  - ABSCESS BACTERIAL [None]
  - CHILLS [None]
  - DECREASED APPETITE [None]
  - DRY SKIN [None]
  - FATIGUE [None]
  - FOLLICULITIS [None]
  - FURUNCLE [None]
  - IMPAIRED WORK ABILITY [None]
  - PITTING OEDEMA [None]
  - PRURITUS [None]
  - PURULENCE [None]
  - RASH MACULO-PAPULAR [None]
  - RASH PAPULAR [None]
  - RASH PUSTULAR [None]
  - SKIN INDURATION [None]
  - SKIN INFECTION [None]
  - SKIN NODULE [None]
  - STAPHYLOCOCCAL IMPETIGO [None]
  - STAPHYLOCOCCAL INFECTION [None]
  - WOUND INFECTION STAPHYLOCOCCAL [None]
